FAERS Safety Report 5399420-0 (Version None)
Quarter: 2007Q3

REPORT INFORMATION
  Report Type: 
  Country: None (occurrence: None)
  Receive Date: 20070727
  Receipt Date: 20070724
  Transmission Date: 20080115
  Serious: Yes (Hospitalization)
  Sender: FDA-Public Use
  Company Number: EMADSS2003002143

PATIENT
  Age: 36 Year
  Sex: Male

DRUGS (16)
  1. RISPERDAL [Suspect]
     Route: 048
     Dates: start: 20021001, end: 20021129
  2. RISPERDAL [Suspect]
     Route: 048
     Dates: start: 20021001, end: 20021129
  3. RISPERDAL [Suspect]
     Indication: DRUG USE FOR UNKNOWN INDICATION
     Route: 048
     Dates: start: 20021001, end: 20021129
  4. RISPERDAL CONSTA [Suspect]
     Route: 030
     Dates: start: 20021109
  5. RISPERDAL CONSTA [Suspect]
     Indication: DRUG USE FOR UNKNOWN INDICATION
     Route: 030
     Dates: start: 20021109
  6. SEROQUEL [Concomitant]
     Route: 048
     Dates: start: 20021027
  7. SEROQUEL [Concomitant]
     Route: 048
     Dates: start: 20021027
  8. SEROQUEL [Concomitant]
     Route: 048
     Dates: start: 20021027
  9. SEROQUEL [Concomitant]
     Route: 048
     Dates: start: 20021027
  10. SEROQUEL [Concomitant]
     Route: 048
     Dates: start: 20021027
  11. XANAX [Concomitant]
     Route: 048
     Dates: start: 20021102
  12. AKINETON [Concomitant]
     Route: 048
     Dates: start: 20021103
  13. VIOXX [Concomitant]
     Route: 048
     Dates: start: 20021021, end: 20021122
  14. CONVULEX [Concomitant]
     Route: 048
     Dates: start: 20021104
  15. CONVULEX [Concomitant]
     Route: 048
     Dates: start: 20021104
  16. PANTOPRAZOLE SODIUM [Concomitant]
     Route: 048
     Dates: start: 20021028, end: 20021122

REACTIONS (1)
  - HYPONATRAEMIA [None]
